FAERS Safety Report 6145855-8 (Version None)
Quarter: 2009Q2

REPORT INFORMATION
  Report Type: 
  Country: None (occurrence: None)
  Receive Date: 20090407
  Receipt Date: 20090402
  Transmission Date: 20091009
  Serious: Yes (Life-Threatening)
  Sender: FDA-Public Use
  Company Number: JP-ASTRAZENECA-2009AP01762

PATIENT
  Age: 59 Year
  Sex: Female

DRUGS (1)
  1. OMEPRAL [Suspect]
     Indication: GASTRIC ULCER
     Route: 048
     Dates: start: 20090119, end: 20090304

REACTIONS (1)
  - THROMBOTIC THROMBOCYTOPENIC PURPURA [None]
